FAERS Safety Report 14501763 (Version 1)
Quarter: 2018Q1

REPORT INFORMATION
  Report Type: Spontaneous
  Country: US (occurrence: US)
  Receive Date: 20180206
  Receipt Date: 20180206
  Transmission Date: 20180509
  Serious: Yes (Disabling, Other)
  Sender: FDA-Public Use
  Company Number: None

PATIENT
  Age: 39 Year
  Sex: Female
  Weight: 101.25 kg

DRUGS (1)
  1. MULTIHANCE [Suspect]
     Active Substance: GADOBENATE DIMEGLUMINE
     Indication: NUCLEAR MAGNETIC RESONANCE IMAGING
     Route: 042
     Dates: start: 20170809, end: 20170809

REACTIONS (8)
  - Peripheral swelling [None]
  - Arthralgia [None]
  - Myalgia [None]
  - Hypertonic bladder [None]
  - Pain in extremity [None]
  - Sleep disorder [None]
  - Pain [None]
  - Alopecia [None]

NARRATIVE: CASE EVENT DATE: 20170809
